FAERS Safety Report 6687729 (Version 1)
Quarter: 2020Q3

REPORT INFORMATION
  Report Type: Spontaneous
  Country: CA (occurrence: None)
  Receive Date: 20030306
  Receipt Date: 20030306
  Transmission Date: 20201104
  Serious: Yes (Death)
  Sender: FDA-Public Use
  Company Number: 03H-028-0212112-00

PATIENT
  Age: 71 Year
  Sex: Male

DRUGS (11)
  1. PROPOFOL. [Suspect]
     Active Substance: PROPOFOL
     Indication: ANAESTHESIA
     Dosage: INHALATION
     Route: 055
     Dates: start: 200207
  2. COLLOIDAL SILVER [Suspect]
     Active Substance: SILVER
     Dates: start: 200206, end: 200206
  3. DESFLURANE [Concomitant]
  4. PHENOBARBITAL SODIUM. [Suspect]
     Active Substance: PHENOBARBITAL SODIUM
     Indication: SEIZURE
     Dates: end: 200207
  5. CISATRACURIUM BESYLATE. [Concomitant]
     Active Substance: CISATRACURIUM BESYLATE
  6. ISOFLURANE. [Suspect]
     Active Substance: ISOFLURANE
     Indication: ANAESTHESIA
     Dosage: 0.10% TO 0.66% END?TIDAL CONCENTRATION, INHALATION
     Route: 055
     Dates: start: 200207, end: 200207
  7. PHENYTOIN SODIUM. [Suspect]
     Active Substance: PHENYTOIN SODIUM
     Indication: SEIZURE
     Dates: start: 200207
  8. MIDAZOLAM HYDROCHLORIDE. [Suspect]
     Active Substance: MIDAZOLAM HYDROCHLORIDE
     Indication: SEIZURE
     Dates: start: 200207, end: 200207
  9. CLONAZEPAM. [Concomitant]
     Active Substance: CLONAZEPAM
  10. VALPROATE SODIUM. [Concomitant]
     Active Substance: VALPROATE SODIUM
  11. LORAZEPAM. [Concomitant]
     Active Substance: LORAZEPAM

REACTIONS (6)
  - Toxicity to various agents [None]
  - Drug ineffective [None]
  - Status epilepticus [None]
  - Encephalopathy [None]
  - Hypotension [None]
  - Apallic syndrome [None]

NARRATIVE: CASE EVENT DATE: 200207
